FAERS Safety Report 21857596 (Version 2)
Quarter: 2023Q1

REPORT INFORMATION
  Report Type: Spontaneous
  Country: US (occurrence: US)
  Receive Date: 20230113
  Receipt Date: 20230315
  Transmission Date: 20230418
  Serious: No
  Sender: FDA-Public Use
  Company Number: None

PATIENT
  Age: 78 Year
  Sex: Female

DRUGS (5)
  1. PREDNISONE [Suspect]
     Active Substance: PREDNISONE
     Indication: Bronchitis
     Dosage: HIGH DOSE
     Dates: start: 20230104
  2. PREDNISONE [Suspect]
     Active Substance: PREDNISONE
     Indication: Sinusitis
  3. PREDNISONE [Suspect]
     Active Substance: PREDNISONE
     Indication: Pain
  4. PREDNISONE [Suspect]
     Active Substance: PREDNISONE
     Indication: Inflammation
  5. PREDNISONE [Suspect]
     Active Substance: PREDNISONE

REACTIONS (7)
  - Therapeutic product effect incomplete [Unknown]
  - Pain [Recovering/Resolving]
  - Memory impairment [Recovering/Resolving]
  - Anxiety [Recovering/Resolving]
  - Mania [Recovering/Resolving]
  - Disturbance in attention [Recovering/Resolving]
  - Illness [Recovering/Resolving]
